FAERS Safety Report 8251941-9 (Version None)
Quarter: 2012Q2

REPORT INFORMATION
  Report Type: 
  Country: None (occurrence: None)
  Receive Date: 20120402
  Receipt Date: 20120327
  Transmission Date: 20120825
  Serious: Yes (Other)
  Sender: FDA-Public Use
  Company Number: US-PFIZER INC-2012078610

PATIENT
  Sex: Male
  Weight: 88.435 kg

DRUGS (2)
  1. OXYCONTIN [Concomitant]
     Dosage: 60 MG, 3X/DAY
  2. VIAGRA [Suspect]
     Indication: ERECTILE DYSFUNCTION
     Dosage: 50 MG, AS NEEDED
     Route: 048

REACTIONS (1)
  - ERECTION INCREASED [None]
